FAERS Safety Report 7286496-9 (Version None)
Quarter: 2011Q1

REPORT INFORMATION
  Report Type: 
  Country: None (occurrence: None)
  Receive Date: 20110210
  Receipt Date: 20110201
  Transmission Date: 20110831
  Serious: Yes (Hospitalization, Other)
  Sender: FDA-Public Use
  Company Number: US-ROCHE-746768

PATIENT
  Sex: Female
  Weight: 85.3 kg

DRUGS (5)
  1. RIBASPHERE [Suspect]
     Indication: HEPATITIS C
     Dosage: DOSE TAKEN IN DIVIDED DOSES
     Route: 048
     Dates: start: 20101003, end: 20101108
  2. INSULIN [Concomitant]
  3. PEGINTERFERON ALFA-2A [Suspect]
     Indication: HEPATITIS C
     Route: 058
     Dates: start: 20101003, end: 20101108
  4. JANUVIA [Concomitant]
  5. METFORMIN [Concomitant]

REACTIONS (5)
  - DIZZINESS [None]
  - HAEMOLYTIC ANAEMIA [None]
  - CORONARY ARTERY OCCLUSION [None]
  - BONE MARROW FAILURE [None]
  - CHEST DISCOMFORT [None]
